FAERS Safety Report 14479643 (Version 1)
Quarter: 2018Q1

REPORT INFORMATION
  Report Type: Spontaneous
  Country: US (occurrence: US)
  Receive Date: 20180202
  Receipt Date: 20180202
  Transmission Date: 20180509
  Serious: No
  Sender: FDA-Public Use
  Company Number: US-BAYER-2018-019140

PATIENT
  Age: 70 Year
  Sex: Female

DRUGS (5)
  1. ALEVE PM [Suspect]
     Active Substance: DIPHENHYDRAMINE HYDROCHLORIDE\NAPROXEN SODIUM
     Indication: PAIN
     Dosage: 2 DF, UNK
     Route: 048
     Dates: start: 20180127
  2. ALEVE [Suspect]
     Active Substance: NAPROXEN SODIUM
     Dosage: 2 DF, UNK
     Route: 048
  3. ALEVE PM [Suspect]
     Active Substance: DIPHENHYDRAMINE HYDROCHLORIDE\NAPROXEN SODIUM
     Indication: BURSITIS
  4. ALEVE PM [Suspect]
     Active Substance: DIPHENHYDRAMINE HYDROCHLORIDE\NAPROXEN SODIUM
     Indication: INSOMNIA
  5. ALEVE PM [Suspect]
     Active Substance: DIPHENHYDRAMINE HYDROCHLORIDE\NAPROXEN SODIUM
     Indication: ARTHRALGIA

REACTIONS (4)
  - Drug ineffective [Unknown]
  - Incorrect dosage administered [Unknown]
  - Pain in extremity [Not Recovered/Not Resolved]
  - Product package associated injury [Not Recovered/Not Resolved]

NARRATIVE: CASE EVENT DATE: 20180127
